FAERS Safety Report 21063106 (Version 1)
Quarter: 2022Q3

REPORT INFORMATION
  Report Type: Spontaneous
  Country: JP (occurrence: JP)
  Receive Date: 20220711
  Receipt Date: 20220711
  Transmission Date: 20221026
  Serious: Yes (Life-Threatening)
  Sender: FDA-Public Use
  Company Number: JP-CORZA MEDICAL GMBH-2022-JP-002191

PATIENT
  Age: 77 Year
  Sex: Female

DRUGS (1)
  1. TACHOSIL [Suspect]
     Active Substance: FIBRINOGEN HUMAN\THROMBIN HUMAN
     Indication: Myocardial rupture

REACTIONS (2)
  - Interventricular septum rupture [Unknown]
  - Device adhesion issue [Unknown]
